FAERS Safety Report 21522098 (Version 3)
Quarter: 2022Q4

REPORT INFORMATION
  Report Type: Spontaneous
  Country: GB (occurrence: GB)
  Receive Date: 20221028
  Receipt Date: 20221230
  Transmission Date: 20230113
  Serious: Yes (Death, Congenital Anomaly, Other)
  Sender: FDA-Public Use
  Company Number: GB-AUROBINDO-AUR-APL-2018-033634

PATIENT
  Sex: Male

DRUGS (17)
  1. KALETRA [Suspect]
     Active Substance: LOPINAVIR\RITONAVIR
     Indication: Maternal exposure timing unspecified
     Route: 064
  2. LOPINAVIR\RITONAVIR [Suspect]
     Active Substance: LOPINAVIR\RITONAVIR
     Indication: Maternal exposure timing unspecified
     Route: 064
  3. LAMIVUDINE [Suspect]
     Active Substance: LAMIVUDINE
     Indication: Maternal exposure timing unspecified
     Route: 064
  4. TRUVADA [Suspect]
     Active Substance: EMTRICITABINE\TENOFOVIR DISOPROXIL FUMARATE
     Indication: Maternal exposure timing unspecified
     Route: 064
  5. METFORMIN HYDROCHLORIDE [Suspect]
     Active Substance: METFORMIN HYDROCHLORIDE
     Indication: Maternal exposure timing unspecified
     Route: 064
  6. FOLIC ACID [Suspect]
     Active Substance: FOLIC ACID
     Indication: Maternal exposure timing unspecified
     Route: 064
  7. ISENTRESS [Suspect]
     Active Substance: RALTEGRAVIR POTASSIUM
     Indication: Maternal exposure timing unspecified
     Route: 064
  8. LABETALOL [Suspect]
     Active Substance: LABETALOL\LABETALOL HYDROCHLORIDE
     Indication: Maternal exposure timing unspecified
     Route: 064
  9. INSULIN ASPART [Suspect]
     Active Substance: INSULIN ASPART
     Indication: Maternal exposure timing unspecified
     Route: 064
  10. EMTRICITABINE\TENOFOVIR DISOPROXIL [Suspect]
     Active Substance: EMTRICITABINE\TENOFOVIR DISOPROXIL
     Indication: Maternal exposure timing unspecified
     Route: 064
  11. EFAVIRENZ [Suspect]
     Active Substance: EFAVIRENZ
     Indication: Maternal exposure timing unspecified
     Route: 064
  12. ZIDOVUDINE [Suspect]
     Active Substance: ZIDOVUDINE
     Indication: Maternal exposure timing unspecified
     Route: 064
  13. NEVIRAPINE [Suspect]
     Active Substance: NEVIRAPINE
     Indication: Maternal exposure timing unspecified
     Route: 064
  14. RITONAVIR [Suspect]
     Active Substance: RITONAVIR
     Indication: Maternal exposure timing unspecified
     Route: 064
  15. INSULIN ASPART [Suspect]
     Active Substance: INSULIN ASPART
     Indication: Maternal exposure timing unspecified
     Route: 064
  16. TENOFOVIR DISOPROXIL FUMARATE [Suspect]
     Active Substance: TENOFOVIR DISOPROXIL FUMARATE
     Indication: Maternal exposure timing unspecified
     Route: 064
  17. VITAMIN B12 [Suspect]
     Active Substance: CYANOCOBALAMIN
     Indication: Maternal exposure timing unspecified
     Route: 064

REACTIONS (6)
  - Cleft lip and palate [Fatal]
  - Hepatic cytolysis [Fatal]
  - Foetal exposure during pregnancy [Unknown]
  - Ultrasound antenatal screen [Fatal]
  - Trisomy 18 [Fatal]
  - Hydrops foetalis [Fatal]
